FAERS Safety Report 5345131-7 (Version None)
Quarter: 2007Q2

REPORT INFORMATION
  Report Type: 
  Country: None (occurrence: None)
  Receive Date: 20070601
  Receipt Date: 20070523
  Transmission Date: 20071010
  Serious: No
  Sender: FDA-Public Use
  Company Number: S07-USA-02223-01

PATIENT
  Age: 31 Year
  Sex: Female

DRUGS (1)
  1. LEXAPRO [Suspect]
     Indication: OBSESSIVE-COMPULSIVE DISORDER
     Dosage: 20 MG QD PO
     Route: 048
     Dates: start: 20040101

REACTIONS (6)
  - CAESAREAN SECTION [None]
  - CHOLESTASIS [None]
  - DRUG EXPOSURE DURING PREGNANCY [None]
  - INDUCED LABOUR [None]
  - PREGNANCY [None]
  - PREMATURE LABOUR [None]
